FAERS Safety Report 21236240 (Version 2)
Quarter: 2022Q3

REPORT INFORMATION
  Report Type: Report from Study
  Country: US (occurrence: None)
  Receive Date: 20220822
  Receipt Date: 20220904
  Transmission Date: 20221027
  Serious: No
  Sender: FDA-Public Use
  Company Number: US-Merck Healthcare KGaA-9342738

PATIENT
  Age: 43 Year
  Sex: Female

DRUGS (1)
  1. MAVENCLAD [Suspect]
     Active Substance: CLADRIBINE
     Indication: Multiple sclerosis
     Dosage: YEAR ONE THERAPY
     Route: 048
     Dates: start: 20220718

REACTIONS (14)
  - Alopecia [Unknown]
  - Fatigue [Unknown]
  - Headache [Unknown]
  - Burning sensation [Unknown]
  - Nausea [Unknown]
  - Arthralgia [Unknown]
  - Insomnia [Unknown]
  - Pain [Unknown]
  - Feeling abnormal [Unknown]
  - Memory impairment [Unknown]
  - Hyperhidrosis [Unknown]
  - Back pain [Unknown]
  - Feeling of body temperature change [Unknown]
  - Body temperature fluctuation [Unknown]

NARRATIVE: CASE EVENT DATE: 20220720
